FAERS Safety Report 10167435 (Version 1)
Quarter: 2014Q2

REPORT INFORMATION
  Report Type: Spontaneous
  Country: IT (occurrence: IT)
  Receive Date: 20140512
  Receipt Date: 20140512
  Transmission Date: 20141212
  Serious: Yes (Other)
  Sender: FDA-Public Use
  Company Number: IT-TEVA-479111ISR

PATIENT
  Age: 51 Year
  Sex: Male
  Weight: 81 kg

DRUGS (2)
  1. CISPLATINO TEVA ITALIA [Suspect]
     Indication: NEUROENDOCRINE CARCINOMA METASTATIC
     Dosage: 138 MILLIGRAM DAILY;
     Route: 042
     Dates: start: 20140417, end: 20140417
  2. ETOPOSIDE TEVA [Suspect]
     Indication: NEUROENDOCRINE CARCINOMA METASTATIC
     Dosage: 180 MILLIGRAM DAILY;
     Route: 042
     Dates: start: 20140417, end: 20140419

REACTIONS (3)
  - Mucosal inflammation [Unknown]
  - Vomiting [Unknown]
  - Decreased appetite [Unknown]
